FAERS Safety Report 7951771-9 (Version None)
Quarter: 2011Q4

REPORT INFORMATION
  Report Type: 
  Country: None (occurrence: None)
  Receive Date: 20111201
  Receipt Date: 20111122
  Transmission Date: 20120403
  Serious: Yes (Hospitalization)
  Sender: FDA-Public Use
  Company Number: US-BAYER-2011-081371

PATIENT
  Age: 35 Year
  Sex: Female
  Weight: 68.027 kg

DRUGS (5)
  1. XANAX [Concomitant]
  2. IBUPROFEN [Concomitant]
  3. ASPIRIN [Concomitant]
  4. LEXAPRO [Concomitant]
  5. BETASERON [Suspect]
     Indication: MULTIPLE SCLEROSIS
     Dosage: 0.25 MG, QOD
     Route: 058

REACTIONS (4)
  - FALL [None]
  - BALANCE DISORDER [None]
  - MUSCLE SPASMS [None]
  - GAIT DISTURBANCE [None]
